FAERS Safety Report 14874170 (Version 1)
Quarter: 2018Q2

REPORT INFORMATION
  Report Type: Spontaneous
  Country: US (occurrence: US)
  Receive Date: 20180510
  Receipt Date: 20180510
  Transmission Date: 20180711
  Serious: Yes (Hospitalization, Other)
  Sender: FDA-Public Use
  Company Number: US-BAYER-2018-085408

PATIENT
  Age: 65 Year
  Sex: Male

DRUGS (2)
  1. KOGENATE FS [Suspect]
     Active Substance: ANTIHEMOPHILIC FACTOR, HUMAN RECOMBINANT
     Indication: FACTOR VIII DEFICIENCY
     Dosage: 6000 IU, PRN
     Route: 042
     Dates: start: 20140115
  2. KOGENATE FS [Suspect]
     Active Substance: ANTIHEMOPHILIC FACTOR, HUMAN RECOMBINANT
     Indication: FACTOR VIII DEFICIENCY
     Dosage: 6000 IU, TIW
     Route: 042
     Dates: start: 20140115

REACTIONS (4)
  - Medical procedure [None]
  - Nephrolithiasis [None]
  - Post procedural haemorrhage [None]
  - Haemarthrosis [None]
